FAERS Safety Report 7319683-1 (Version None)
Quarter: 2011Q1

REPORT INFORMATION
  Report Type: 
  Country: None (occurrence: None)
  Receive Date: 20110228
  Receipt Date: 20100727
  Transmission Date: 20110831
  Serious: No
  Sender: FDA-Public Use
  Company Number: A0872523A

PATIENT
  Age: 33 Year
  Sex: Male

DRUGS (3)
  1. TENS UNIT [Concomitant]
  2. KLONOPIN [Concomitant]
  3. LAMICTAL [Suspect]
     Indication: BIPOLAR DISORDER
     Dosage: 200MG PER DAY
     Route: 048
     Dates: start: 20091101

REACTIONS (4)
  - RASH [None]
  - BEDRIDDEN [None]
  - HEADACHE [None]
  - SOMNOLENCE [None]
